FAERS Safety Report 9182437 (Version 1)
Quarter: 2013Q1

REPORT INFORMATION
  Report Type: Spontaneous
  Country: US (occurrence: US)
  Receive Date: 20130322
  Receipt Date: 20130322
  Transmission Date: 20140127
  Serious: No
  Sender: FDA-Public Use
  Company Number: US-BRISTOL-MYERS SQUIBB COMPANY-16749723

PATIENT
  Age: 64 Year
  Sex: Male
  Weight: 65.76 kg

DRUGS (1)
  1. ERBITUX [Suspect]
     Indication: COLON CANCER METASTATIC
     Dosage: STARTED IN FEB; LAST DOSE ON: 03JUL2012

REACTIONS (2)
  - Rash pruritic [Unknown]
  - Nail disorder [Not Recovered/Not Resolved]
